FAERS Safety Report 22098631 (Version 1)
Quarter: 2023Q1

REPORT INFORMATION
  Report Type: Spontaneous
  Country: US (occurrence: None)
  Receive Date: 20230314
  Receipt Date: 20230314
  Transmission Date: 20230418
  Serious: Yes (Death, Hospitalization)
  Sender: FDA-Public Use
  Company Number: None

PATIENT
  Age: 72 Year
  Sex: Female
  Weight: 60.75 kg

DRUGS (1)
  1. ZOLEDRONIC ACID [Suspect]
     Active Substance: ZOLEDRONIC ACID
     Indication: Osteoporosis
     Dosage: OTHER FREQUENCY : YEARLY;?
     Route: 041
     Dates: start: 20230306, end: 20230306

REACTIONS (4)
  - Dyspnoea [None]
  - Pain [None]
  - Renal impairment [None]
  - Pulmonary oedema [None]

NARRATIVE: CASE EVENT DATE: 20230306
